FAERS Safety Report 11860285 (Version 3)
Quarter: 2016Q1

REPORT INFORMATION
  Report Type: Report from Study
  Country: PL (occurrence: PL)
  Receive Date: 20151222
  Receipt Date: 20160304
  Transmission Date: 20160526
  Serious: No
  Sender: FDA-Public Use
  Company Number: PL-UCBSA-2015041166

PATIENT
  Age: 38 Year
  Sex: Female
  Weight: 59 kg

DRUGS (3)
  1. AUGMENTIN [Concomitant]
     Active Substance: AMOXICILLIN\CLAVULANATE POTASSIUM
     Indication: ANTIBIOTIC THERAPY
     Dosage: 625 MG, 3X/DAY (TID)
     Dates: start: 20151129, end: 20151206
  2. TRILAC [Concomitant]
     Indication: PROBIOTIC THERAPY
     Dosage: 1 DF, 2X/DAY (BID)
     Route: 048
     Dates: start: 20151129, end: 20151213
  3. CERTOLIZUMAB PEGOL [Suspect]
     Active Substance: CERTOLIZUMAB PEGOL
     Indication: PSORIASIS
     Dosage: 2 ML, UNKNOWN FREQUENCY
     Route: 058
     Dates: start: 20150812, end: 20151201

REACTIONS (1)
  - Bronchitis [Recovered/Resolved]

NARRATIVE: CASE EVENT DATE: 20151207
